FAERS Safety Report 5810642-4 (Version None)
Quarter: 2008Q3

REPORT INFORMATION
  Report Type: 
  Country: None (occurrence: None)
  Receive Date: 20080710
  Receipt Date: 20080626
  Transmission Date: 20090109
  Serious: Yes (Hospitalization)
  Sender: FDA-Public Use
  Company Number: RENA-1000165

PATIENT
  Sex: Female

DRUGS (2)
  1. RENAGEL [Suspect]
     Indication: HYPERPHOSPHATAEMIA
     Dosage: 1.6 G, TID, ORAL; 1.6 G, ORAL
     Route: 048
     Dates: start: 20070101
  2. RENAGEL [Suspect]
     Indication: HYPERPHOSPHATAEMIA
     Dosage: 1.6 G, TID, ORAL; 1.6 G, ORAL
     Route: 048
     Dates: start: 20080623

REACTIONS (2)
  - DIVERTICULITIS [None]
  - HYPERPHOSPHATAEMIA [None]
